FAERS Safety Report 12361405 (Version 1)
Quarter: 2016Q2

REPORT INFORMATION
  Report Type: Spontaneous
  Country: US (occurrence: US)
  Receive Date: 20160512
  Receipt Date: 20160512
  Transmission Date: 20160815
  Serious: No
  Sender: FDA-Public Use
  Company Number: US-SA-2016SA031112

PATIENT
  Age: 62 Year
  Sex: Female

DRUGS (14)
  1. NEXIUM [Concomitant]
     Active Substance: ESOMEPRAZOLE MAGNESIUM
  2. VICTOZA [Concomitant]
     Active Substance: LIRAGLUTIDE
  3. ASPIRIN. [Concomitant]
     Active Substance: ASPIRIN
  4. SINGULAIR [Concomitant]
     Active Substance: MONTELUKAST SODIUM
  5. COREG [Concomitant]
     Active Substance: CARVEDILOL
  6. JANUMET [Concomitant]
     Active Substance: METFORMIN HYDROCHLORIDE\SITAGLIPTIN PHOSPHATE
  7. HUMALOG MIX [Concomitant]
     Active Substance: INSULIN LISPRO
  8. CELEBREX [Concomitant]
     Active Substance: CELECOXIB
  9. ALIROCUMAB PREFILLED PEN [Concomitant]
     Active Substance: ALIROCUMAB
  10. PLAVIX [Concomitant]
     Active Substance: CLOPIDOGREL BISULFATE
  11. TRAMADOL HYDROCHLORIDE. [Concomitant]
     Active Substance: TRAMADOL HYDROCHLORIDE
  12. PRALUENT [Suspect]
     Active Substance: ALIROCUMAB
     Indication: HYPERCHOLESTEROLAEMIA
     Route: 058
  13. ERYTHROMYCIN. [Concomitant]
     Active Substance: ERYTHROMYCIN
  14. LYRICA [Concomitant]
     Active Substance: PREGABALIN

REACTIONS (2)
  - Fatigue [Unknown]
  - Arthralgia [Unknown]
